FAERS Safety Report 11555406 (Version 3)
Quarter: 2019Q2

REPORT INFORMATION
  Report Type: Spontaneous
  Country: US (occurrence: US)
  Receive Date: 20150925
  Receipt Date: 20190620
  Transmission Date: 20190711
  Serious: Yes (Hospitalization, Other)
  Sender: FDA-Public Use
  Company Number: US-RB PHARMACEUTICALS LIMITED-INDV-083347-2015

PATIENT
  Age: 11 Year
  Sex: Male

DRUGS (1)
  1. BUPRENORPHINE. [Suspect]
     Active Substance: BUPRENORPHINE
     Dosage: UNK
     Route: 065

REACTIONS (11)
  - Hyporesponsive to stimuli [Unknown]
  - Accidental exposure to product by child [Recovered/Resolved]
  - Erythema [Unknown]
  - Speech disorder [Unknown]
  - Vomiting [Unknown]
  - Dysstasia [Unknown]
  - Miosis [Unknown]
  - Drug screen positive [Recovered/Resolved]
  - Joint swelling [Unknown]
  - Contusion [Unknown]
  - Coma blister [Unknown]
